FAERS Safety Report 4879495-5 (Version None)
Quarter: 2005Q4

REPORT INFORMATION
  Report Type: 
  Country: None (occurrence: None)
  Receive Date: 20051209
  Receipt Date: 20050930
  Transmission Date: 20060501
  Serious: Yes (Death)
  Sender: FDA-Public Use
  Company Number: USA-2005-0021378

PATIENT
  Age: 35 Year
  Sex: Male
  Weight: 86.2 kg

DRUGS (9)
  1. FENTANYL [Suspect]
  2. METHADONE HCL [Suspect]
  3. DIAZEPAM [Suspect]
  4. TRAZODONE (TRAZODONE) [Suspect]
  5. HYDROCODONE BITARTRATE (HYDROCODONE BITARTRATE) [Suspect]
  6. OXYMORPHONE HYDROCHLORIDE [Suspect]
  7. ATENOLOL [Concomitant]
  8. LORTAB [Concomitant]
  9. ORPHENADRINE [Concomitant]

REACTIONS (3)
  - MULTIPLE DRUG OVERDOSE ACCIDENTAL [None]
  - PULSE ABSENT [None]
  - UNRESPONSIVE TO VERBAL STIMULI [None]
